FAERS Safety Report 4805219-3 (Version None)
Quarter: 2005Q4

REPORT INFORMATION
  Report Type: 
  Country: None (occurrence: None)
  Receive Date: 20051018
  Receipt Date: 20051004
  Transmission Date: 20060501
  Serious: Yes (Hospitalization)
  Sender: FDA-Public Use
  Company Number: TCI2005A04206

PATIENT
  Age: 66 Year
  Sex: Male

DRUGS (4)
  1. ACTOS [Suspect]
     Indication: DIABETES MELLITUS
     Dosage: SEE IMAGE
     Route: 048
     Dates: start: 20050216, end: 20050929
  2. ACTOS [Suspect]
     Indication: DIABETES MELLITUS
     Dosage: SEE IMAGE
     Route: 048
     Dates: start: 20050930
  3. LIVALO (ITAVASTATIN CALCIUM) [Suspect]
     Indication: HYPERLIPIDAEMIA
     Dosage: 1 MG (1 MG, 1 IN 1 D)
     Route: 048
     Dates: start: 20050825
  4. CEPHADOL (DIFENIDOL HYDROCHLORIDE) [Concomitant]

REACTIONS (6)
  - CELLULITIS [None]
  - CONDITION AGGRAVATED [None]
  - DERMAL CYST [None]
  - INDURATION [None]
  - LYMPHADENOPATHY [None]
  - TENDERNESS [None]
